FAERS Safety Report 24741728 (Version 1)
Quarter: 2024Q4

REPORT INFORMATION
  Report Type: Spontaneous
  Country: JP (occurrence: JP)
  Receive Date: 20241217
  Receipt Date: 20241217
  Transmission Date: 20250114
  Serious: Yes (Other)
  Sender: ROCHE
  Company Number: JP-CHUGAI-2024042965

PATIENT

DRUGS (1)
  1. ACTEMRA [Suspect]
     Active Substance: TOCILIZUMAB
     Indication: Castleman^s disease
     Dosage: 8 MILLIGRAM/KILOGRAM, ONCE/4WEEKS
     Route: 042

REACTIONS (2)
  - Haematoma [Unknown]
  - Fibrin degradation products increased [Unknown]

NARRATIVE: CASE EVENT DATE: 20241205
